FAERS Safety Report 7701352-7 (Version None)
Quarter: 2011Q3

REPORT INFORMATION
  Report Type: 
  Country: None (occurrence: None)
  Receive Date: 20110822
  Receipt Date: 20110805
  Transmission Date: 20111222
  Serious: Yes (Other)
  Sender: FDA-Public Use
  Company Number: PHHY2011US72523

PATIENT
  Sex: Male
  Weight: 3.366 kg

DRUGS (1)
  1. METHYLERGONOVINE MALEATE [Suspect]
     Dosage: 0.18 MG, UNK
     Route: 030

REACTIONS (12)
  - OLIGURIA [None]
  - IRRITABILITY [None]
  - EXAGGERATED STARTLE RESPONSE [None]
  - FEEDING DISORDER NEONATAL [None]
  - WRONG DRUG ADMINISTERED [None]
  - HYPERCAPNIA [None]
  - SKIN DISCOLOURATION [None]
  - AGITATION [None]
  - PALLOR [None]
  - LETHARGY [None]
  - CAPILLARY DISORDER [None]
  - OXYGEN SATURATION DECREASED [None]
